FAERS Safety Report 15622067 (Version 2)
Quarter: 2018Q4

REPORT INFORMATION
  Report Type: Spontaneous
  Country: US (occurrence: US)
  Receive Date: 20181115
  Receipt Date: 20181119
  Transmission Date: 20190205
  Serious: Yes (Hospitalization)
  Sender: FDA-Public Use
  Company Number: US-PFIZER INC-2018465424

PATIENT
  Age: 74 Year
  Sex: Male

DRUGS (1)
  1. TIKOSYN [Suspect]
     Active Substance: DOFETILIDE
     Dosage: 0.500 MG, DAILY [0.250 MG, 2 CAPSULES A DAY]
     Dates: start: 201805

REACTIONS (1)
  - Drug ineffective [Unknown]
